FAERS Safety Report 15084280 (Version 1)
Quarter: 2018Q2

REPORT INFORMATION
  Report Type: Spontaneous
  Country: GB (occurrence: GB)
  Receive Date: 20180628
  Receipt Date: 20180628
  Transmission Date: 20180711
  Serious: Yes (Other)
  Sender: FDA-Public Use
  Company Number: GB-TEVA-2018-GB-914093

PATIENT
  Age: 89 Year
  Sex: Female
  Weight: 38 kg

DRUGS (16)
  1. MONTELUKAST [Concomitant]
     Active Substance: MONTELUKAST SODIUM
     Dosage: 1 DOSAGE FORMS DAILY;
     Route: 065
     Dates: start: 20170418
  2. AMOXICILLIN. [Suspect]
     Active Substance: AMOXICILLIN
     Route: 065
     Dates: start: 20180518
  3. NITROFURANTOIN. [Concomitant]
     Active Substance: NITROFURANTOIN
     Dosage: 4 DOSAGE FORMS DAILY;
     Route: 065
     Dates: start: 20180309, end: 20180314
  4. CO-AMOXICLAV [Concomitant]
     Active Substance: AMOXICILLIN\CLAVULANIC ACID
     Dosage: .3 DOSAGE FORMS DAILY;
     Route: 065
     Dates: start: 20180420, end: 20180425
  5. FLUTICASONE. [Concomitant]
     Active Substance: FLUTICASONE
     Dosage: 4 DOSAGE FORMS DAILY;
     Route: 055
     Dates: start: 20130315
  6. HYPROMELLOSE [Concomitant]
     Active Substance: HYPROMELLOSES
     Dosage: USE AS OFTEN AS NEEDED
     Route: 065
     Dates: start: 20130315
  7. CLOTRIMAZOLE. [Concomitant]
     Active Substance: CLOTRIMAZOLE
     Dosage: APPLY 2-3 TIMES/DAY
     Route: 065
     Dates: start: 20180329, end: 20180403
  8. MACROGOL [Concomitant]
     Active Substance: POLYETHYLENE GLYCOLS
     Dosage: 2-4 DAILY
     Route: 064
     Dates: start: 20150910
  9. ADCAL [Concomitant]
     Active Substance: CALCIUM CARBONATE
     Dosage: 2 DOSAGE FORMS DAILY;
     Route: 065
     Dates: start: 20160510
  10. IBUPROFEN. [Concomitant]
     Active Substance: IBUPROFEN
     Dosage: 3 DOSAGE FORMS DAILY; APPLY
     Route: 065
     Dates: start: 20140331
  11. DOXYCYCLINE. [Concomitant]
     Active Substance: DOXYCYCLINE
     Dosage: TWO NOW THEN ONE DAILY
     Route: 065
     Dates: start: 20180423, end: 20180430
  12. CODEINE PHOSPHATE [Concomitant]
     Active Substance: CODEINE PHOSPHATE
     Dosage: 1-2  UP TO 4 HOURLY AS NEEDED
     Route: 065
     Dates: start: 20171023
  13. MORPHINE SULFATE. [Concomitant]
     Active Substance: MORPHINE SULFATE
     Indication: PAIN
     Dosage: UP TO 4 HOURLY
     Route: 065
     Dates: start: 20180309, end: 20180323
  14. EPADERM [Concomitant]
     Active Substance: MINERAL OIL\PETROLATUM\WAX, EMULSIFYING
     Dosage: 1 DOSAGE FORMS DAILY; APPLY TO ALL DRY AREAS
     Route: 065
     Dates: start: 20171025
  15. SALBUTAMOL [Concomitant]
     Active Substance: ALBUTEROL
     Dosage: PUFFS EVERY 3HRLY
     Route: 065
     Dates: start: 20170413
  16. PARACETAMOL [Concomitant]
     Active Substance: ACETAMINOPHEN
     Dosage: 8 DOSAGE FORMS DAILY;
     Route: 065
     Dates: start: 20170920

REACTIONS (4)
  - Contusion [Unknown]
  - Erythema [Unknown]
  - Vomiting [Unknown]
  - Nausea [Unknown]

NARRATIVE: CASE EVENT DATE: 20180518
